FAERS Safety Report 19423860 (Version 7)
Quarter: 2022Q1

REPORT INFORMATION
  Report Type: Report from Study
  Country: US (occurrence: US)
  Receive Date: 20210616
  Receipt Date: 20220208
  Transmission Date: 20220423
  Serious: No
  Sender: FDA-Public Use
  Company Number: NVSC2021US132831

PATIENT
  Sex: Female
  Weight: 78.458 kg

DRUGS (8)
  1. TREPROSTINIL [Suspect]
     Active Substance: TREPROSTINIL
     Indication: Pulmonary arterial hypertension
     Dosage: 13 NG/KG/MIN, CONT
     Route: 065
     Dates: start: 20210413
  2. TREPROSTINIL [Suspect]
     Active Substance: TREPROSTINIL
     Dosage: 18 NG/KG/MIN, CONT
     Route: 042
     Dates: start: 20210413
  3. TREPROSTINIL [Suspect]
     Active Substance: TREPROSTINIL
     Dosage: 20 NG/KG/MIN, CONT
     Route: 042
     Dates: start: 20210413
  4. TREPROSTINIL [Suspect]
     Active Substance: TREPROSTINIL
     Dosage: 30 NG/KG/MIN, CONT
     Route: 065
     Dates: start: 20210413
  5. TREPROSTINIL [Suspect]
     Active Substance: TREPROSTINIL
     Dosage: UNK ( 22 NG/KG/MIN), CONT
     Route: 042
     Dates: start: 20210413
  6. SILDENAFIL CITRATE [Concomitant]
     Active Substance: SILDENAFIL CITRATE
     Indication: Product used for unknown indication
     Dosage: UNK
     Route: 065
  7. AMBRISENTAN [Concomitant]
     Active Substance: AMBRISENTAN
     Indication: Product used for unknown indication
     Dosage: UNK
     Route: 065
  8. UPTRAVI [Concomitant]
     Active Substance: SELEXIPAG
     Indication: Product used for unknown indication
     Dosage: UNK
     Route: 065

REACTIONS (8)
  - Dermatitis contact [Unknown]
  - Sinus congestion [Unknown]
  - Erythema [Unknown]
  - Pain in jaw [Unknown]
  - Rash macular [Unknown]
  - Rash [Unknown]
  - Headache [Recovering/Resolving]
  - Infusion site erythema [Unknown]
